FAERS Safety Report 7784915-2 (Version None)
Quarter: 2011Q3

REPORT INFORMATION
  Report Type: 
  Country: None (occurrence: None)
  Receive Date: 20110928
  Receipt Date: 20110921
  Transmission Date: 20111222
  Serious: Yes (Other)
  Sender: FDA-Public Use
  Company Number: JP-MERCK-1109USA01007

PATIENT
  Age: 59 Year
  Sex: Male

DRUGS (3)
  1. PEPCID [Suspect]
     Route: 041
     Dates: end: 20110909
  2. IOPAMIDOL [Suspect]
     Route: 041
  3. PEPCID [Suspect]
     Route: 041
     Dates: start: 20110901

REACTIONS (2)
  - CREATININE RENAL CLEARANCE DECREASED [None]
  - BLOOD CREATININE INCREASED [None]
